FAERS Safety Report 9660364 (Version 2)
Quarter: 2013Q4

REPORT INFORMATION
  Report Type: Spontaneous
  Country: US (occurrence: US)
  Receive Date: 20131031
  Receipt Date: 20131031
  Transmission Date: 20140711
  Serious: Yes (Other)
  Sender: FDA-Public Use
  Company Number: US-NAPPMUNDI-USA-2011-0073000

PATIENT
  Age: 63 Year
  Sex: Female
  Weight: 77.1 kg

DRUGS (3)
  1. OXYCONTIN TABLETS [Suspect]
     Indication: PAIN
     Dosage: 80 MG, TID
     Dates: start: 2002
  2. OXYCONTIN TABLETS [Suspect]
     Indication: SPINAL COLUMN STENOSIS
  3. OXYCONTIN TABLETS [Suspect]
     Indication: OSTEOARTHRITIS

REACTIONS (1)
  - Drug dependence [Not Recovered/Not Resolved]
